FAERS Safety Report 10191835 (Version 2)
Quarter: 2014Q4

REPORT INFORMATION
  Report Type: Spontaneous
  Country: US (occurrence: None)
  Receive Date: 20140521
  Receipt Date: 20141212
  Transmission Date: 20150528
  Serious: Yes (Hospitalization)
  Sender: FDA-Public Use
  Company Number: 2014-US-005929

PATIENT
  Age: 71 Year
  Sex: Male
  Weight: 78.9 kg

DRUGS (10)
  1. XYREM [Suspect]
     Active Substance: SODIUM OXYBATE
     Indication: CATAPLEXY
     Route: 048
     Dates: start: 201302, end: 2013
  2. ASPIRIN (ASPIRIN) [Concomitant]
     Active Substance: ASPIRIN
  3. LEVOTHYROXINE [Concomitant]
     Active Substance: LEVOTHYROXINE
  4. NITROGLYCERIN. [Concomitant]
     Active Substance: NITROGLYCERIN
  5. MIRAPEX [Concomitant]
     Active Substance: PRAMIPEXOLE DIHYDROCHLORIDE
  6. XYREM [Suspect]
     Active Substance: SODIUM OXYBATE
     Indication: NARCOLEPSY
     Route: 048
     Dates: start: 201302, end: 2013
  7. PROVIGIL [Suspect]
     Active Substance: MODAFINIL
     Indication: PRODUCT USED FOR UNKNOWN INDICATION
  8. XARELTO [Concomitant]
     Active Substance: RIVAROXABAN
  9. DIGOXIN (DIGOXIN) [Concomitant]
     Active Substance: DIGOXIN
  10. SOTALOL HCL [Concomitant]
     Active Substance: SOTALOL

REACTIONS (5)
  - Gait disturbance [None]
  - Weight decreased [None]
  - Dehydration [None]
  - Liver injury [None]
  - Drug interaction [None]

NARRATIVE: CASE EVENT DATE: 201404
